FAERS Safety Report 23855557 (Version 1)
Quarter: 2024Q2

REPORT INFORMATION
  Report Type: Spontaneous
  Country: BR (occurrence: BR)
  Receive Date: 20240514
  Receipt Date: 20240514
  Transmission Date: 20240716
  Serious: No
  Sender: FDA-Public Use
  Company Number: BR-WT-2024-AMR-040075

PATIENT
  Sex: Female

DRUGS (2)
  1. AVODART [Suspect]
     Active Substance: DUTASTERIDE
     Dosage: 0.5 MG
     Route: 065
  2. AVODART [Suspect]
     Active Substance: DUTASTERIDE
     Dosage: 0.5 MG, QD
     Route: 065

REACTIONS (2)
  - Poor quality product administered [Unknown]
  - Product complaint [Unknown]
